FAERS Safety Report 25735764 (Version 3)
Quarter: 2025Q4

REPORT INFORMATION
  Report Type: Report from Study
  Country: CN (occurrence: CN)
  Receive Date: 20250828
  Receipt Date: 20251106
  Transmission Date: 20260117
  Serious: Yes (Death, Hospitalization, Other)
  Sender: Vantive US Healthcare
  Company Number: CN-VANTIVE-2025VAN002362

PATIENT
  Age: 70 Year
  Sex: Male
  Weight: 70 kg

DRUGS (6)
  1. SODIUM CHLORIDE\SODIUM CITRATE, UNSPECIFIED FORM [Suspect]
     Active Substance: SODIUM CHLORIDE\SODIUM CITRATE, UNSPECIFIED FORM
     Dosage: 1500 ML/H (PRE-DILUTION) (LOADING DOSE/FIRST DOSE 1500 ML/H AND MAINTENANCE DOSE/STABLE DOSE 1500 ML
     Route: 042
     Dates: start: 20250415, end: 20250416
  2. DEXTROSE\LACTIC ACID\MAGNESIUM CL\POTASSIUM CL\SODIUM BICARBONATE\SODI [Suspect]
     Active Substance: DEXTROSE\LACTIC ACID\MAGNESIUM CHLORIDE\POTASSIUM CHLORIDE\SODIUM BICARBONATE\SODIUM CHLORIDE
     Dosage: 1000 ML/H, POST-DILUTION, INTRAVENOUS INFUSION
     Route: 042
     Dates: start: 20250415, end: 20250416
  3. UNSPECIFIED INGREDIENT [Suspect]
     Active Substance: UNSPECIFIED INGREDIENT
     Route: 065
  4. CALCIUM CHLORIDE [Concomitant]
     Active Substance: CALCIUM CHLORIDE
     Indication: Haemofiltration
     Dosage: 8 ML
     Route: 065
     Dates: start: 20250415, end: 20250415
  5. CALCIUM CHLORIDE [Concomitant]
     Active Substance: CALCIUM CHLORIDE
     Dosage: 10 ML
     Route: 065
     Dates: start: 20250415, end: 20250416
  6. POTASSIUM CHLORIDE [Concomitant]
     Active Substance: POTASSIUM CHLORIDE
     Indication: Haemofiltration
     Dosage: 15 ML
     Route: 065
     Dates: start: 20250415, end: 20250416

REACTIONS (4)
  - Septic shock [Fatal]
  - Disease progression [Fatal]
  - Gastrointestinal haemorrhage [Recovered/Resolved]
  - Hyperlactacidaemia [Unknown]

NARRATIVE: CASE EVENT DATE: 20250416
